FAERS Safety Report 12384362 (Version 1)
Quarter: 2016Q2

REPORT INFORMATION
  Report Type: Report from Study
  Country: KE (occurrence: KE)
  Receive Date: 20160519
  Receipt Date: 20160519
  Transmission Date: 20160815
  Serious: Yes (Other)
  Sender: FDA-Public Use
  Company Number: KE-SUN PHARMACEUTICAL INDUSTRIES LTD-2016R1-116737

PATIENT
  Age: 37 Year
  Sex: Male

DRUGS (8)
  1. MAREVAN [Interacting]
     Active Substance: WARFARIN SODIUM
     Indication: TRANSVERSE SINUS THROMBOSIS
  2. COTRIMOXAZOLE [Suspect]
     Active Substance: SULFAMETHOXAZOLE\TRIMETHOPRIM
     Indication: GENITAL HERPES
     Dosage: UNK
     Route: 065
  3. MAREVAN [Interacting]
     Active Substance: WARFARIN SODIUM
     Indication: CAVERNOUS SINUS THROMBOSIS
     Dosage: UNK
     Route: 048
  4. MAREVAN [Interacting]
     Active Substance: WARFARIN SODIUM
     Indication: CAVERNOUS SINUS THROMBOSIS
     Dosage: UNK
     Route: 048
  5. NEVIRAPINE. [Interacting]
     Active Substance: NEVIRAPINE
     Indication: HIV INFECTION
     Dosage: UNK
     Route: 065
  6. MAREVAN [Interacting]
     Active Substance: WARFARIN SODIUM
     Indication: TRANSVERSE SINUS THROMBOSIS
  7. LAMIVUDINE. [Interacting]
     Active Substance: LAMIVUDINE
     Indication: HIV INFECTION
     Dosage: UNK
     Route: 065
  8. ZIDOVUDINE. [Interacting]
     Active Substance: ZIDOVUDINE
     Indication: HIV INFECTION
     Dosage: UNK
     Route: 065

REACTIONS (6)
  - Cavernous sinus thrombosis [Unknown]
  - Transverse sinus thrombosis [Unknown]
  - Drug effect decreased [Recovered/Resolved]
  - Drug effect increased [Recovered/Resolved]
  - Drug interaction [Unknown]
  - International normalised ratio fluctuation [Recovered/Resolved]
